FAERS Safety Report 17836150 (Version 1)
Quarter: 2020Q2

REPORT INFORMATION
  Report Type: Spontaneous
  Country: FR (occurrence: FR)
  Receive Date: 20200528
  Receipt Date: 20200528
  Transmission Date: 20200714
  Serious: Yes (Life-Threatening, Hospitalization)
  Sender: FDA-Public Use
  Company Number: NVSC2020FR146019

PATIENT
  Age: 58 Year
  Sex: Female

DRUGS (5)
  1. PARACETAMOL [Suspect]
     Active Substance: ACETAMINOPHEN
     Indication: BRONCHITIS VIRAL
     Dosage: UNK
     Route: 048
     Dates: start: 20200121, end: 20200126
  2. LEVOTHYROX [Concomitant]
     Active Substance: LEVOTHYROXINE
     Indication: PRODUCT USED FOR UNKNOWN INDICATION
     Dosage: UNK
     Route: 065
  3. TRILEPTAL [Concomitant]
     Active Substance: OXCARBAZEPINE
     Indication: PRODUCT USED FOR UNKNOWN INDICATION
     Dosage: UNK
     Route: 065
  4. CARDENSIEL [Concomitant]
     Active Substance: BISOPROLOL FUMARATE
     Indication: PRODUCT USED FOR UNKNOWN INDICATION
     Dosage: UNK
     Route: 065
  5. ASPIRINE [Suspect]
     Active Substance: ASPIRIN
     Indication: BRONCHITIS VIRAL
     Dosage: UNK
     Route: 048
     Dates: start: 20200121, end: 20200126

REACTIONS (3)
  - Condition aggravated [Recovered/Resolved]
  - Pneumonia [Recovered/Resolved]
  - Superinfection [Recovered/Resolved]

NARRATIVE: CASE EVENT DATE: 20200126
